FAERS Safety Report 10521919 (Version 1)
Quarter: 2014Q4

REPORT INFORMATION
  Report Type: Spontaneous
  Country: GB (occurrence: GB)
  Receive Date: 20141016
  Receipt Date: 20141016
  Transmission Date: 20150528
  Serious: Yes (Other)
  Sender: FDA-Public Use
  Company Number: GB-MERCK-1410GBR007177

PATIENT
  Age: 35 Year
  Sex: Male

DRUGS (3)
  1. ESMERON [Suspect]
     Active Substance: ROCURONIUM BROMIDE
     Indication: ANAESTHESIA
     Dosage: 70 MG, UNK
     Route: 042
     Dates: start: 20141002
  2. CITALOPRAM [Concomitant]
     Active Substance: CITALOPRAM HYDROBROMIDE
  3. RENNIE [Concomitant]
     Active Substance: MAGNESIUM CARBONATE

REACTIONS (2)
  - Generalised erythema [Unknown]
  - Airway complication of anaesthesia [Recovered/Resolved]

NARRATIVE: CASE EVENT DATE: 20141002
